FAERS Safety Report 18513514 (Version 4)
Quarter: 2021Q2

REPORT INFORMATION
  Report Type: Spontaneous
  Country: TR (occurrence: TR)
  Receive Date: 20201117
  Receipt Date: 20210624
  Transmission Date: 20210717
  Serious: Yes (Other)
  Sender: FDA-Public Use
  Company Number: TR-PFIZER INC-2020450295

PATIENT
  Age: 41 Year
  Sex: Female
  Weight: 100 kg

DRUGS (8)
  1. PROZAC [Concomitant]
     Active Substance: FLUOXETINE HYDROCHLORIDE
     Dosage: UNK
  2. ARVELES [Concomitant]
     Active Substance: DEXKETOPROFEN
     Dosage: UNK
  3. INLYTA [Suspect]
     Active Substance: AXITINIB
     Indication: ADENOID CYSTIC CARCINOMA
     Dosage: 5 MG, 2X/DAY (MORNING AND EVENING)
     Route: 048
     Dates: start: 202003, end: 202008
  4. KORDEXA [Concomitant]
     Active Substance: DEXAMETHASONE
     Indication: BRAIN OEDEMA
     Dosage: 16 MG
     Route: 048
     Dates: start: 202101, end: 202102
  5. INLYTA [Suspect]
     Active Substance: AXITINIB
     Dosage: 5 MG, 1X/DAY (MORNING)
     Dates: start: 20201115, end: 202102
  6. INLYTA [Suspect]
     Active Substance: AXITINIB
     Dosage: 5 MG, CYCLIC (1*1)
     Route: 048
     Dates: start: 202009, end: 202012
  7. ALTUZAN [Suspect]
     Active Substance: BEVACIZUMAB
     Indication: BRAIN OEDEMA
     Dosage: UNK
     Dates: start: 202101, end: 202102
  8. INLYTA [Suspect]
     Active Substance: AXITINIB
     Dosage: 25 AMOUNT

REACTIONS (18)
  - Rectal ulcer [Recovered/Resolved]
  - Neoplasm progression [Unknown]
  - Product use in unapproved indication [Unknown]
  - Drug effective for unapproved indication [Unknown]
  - Aphonia [Recovered/Resolved]
  - Aspartate aminotransferase increased [Recovering/Resolving]
  - Visual impairment [Recovered/Resolved]
  - Headache [Recovered/Resolved]
  - Off label use [Unknown]
  - Brain oedema [Recovered/Resolved]
  - Hepatic enzyme increased [Recovered/Resolved]
  - Hypotension [Recovered/Resolved]
  - Alanine aminotransferase increased [Recovering/Resolving]
  - Alopecia [Unknown]
  - Speech disorder [Unknown]
  - Gait disturbance [Unknown]
  - Pulmonary fistula [Recovered/Resolved]
  - Seizure [Unknown]

NARRATIVE: CASE EVENT DATE: 2020
